FAERS Safety Report 11306546 (Version 2)
Quarter: 2016Q1

REPORT INFORMATION
  Report Type: Spontaneous
  Country: US (occurrence: US)
  Receive Date: 20150723
  Receipt Date: 20160124
  Transmission Date: 20160525
  Serious: Yes (Hospitalization)
  Sender: FDA-Public Use
  Company Number: US-DSJP-DSU-2015-122807

PATIENT

DRUGS (5)
  1. BENICAR HCT [Suspect]
     Active Substance: HYDROCHLOROTHIAZIDE\OLMESARTAN MEDOXOMIL
     Dosage: 20/12.5 MG, 1 TABLET DAILY
  2. BENICAR HCT [Suspect]
     Active Substance: HYDROCHLOROTHIAZIDE\OLMESARTAN MEDOXOMIL
     Dosage: 40/12.5 MG, HALF TABLET DAILY
  3. BENICAR [Suspect]
     Active Substance: OLMESARTAN MEDOXOMIL
     Indication: PRODUCT USED FOR UNKNOWN INDICATION
  4. BENICAR HCT [Suspect]
     Active Substance: HYDROCHLOROTHIAZIDE\OLMESARTAN MEDOXOMIL
     Indication: HYPERTENSION
     Dosage: 20/?? MG
     Dates: start: 2005, end: 201406
  5. BENICAR HCT [Suspect]
     Active Substance: HYDROCHLOROTHIAZIDE\OLMESARTAN MEDOXOMIL
     Dosage: 40/?? MG
     Dates: start: 2005, end: 201406

REACTIONS (12)
  - Gastric ulcer [Unknown]
  - Drug administration error [Unknown]
  - Gastroenteritis [Recovered/Resolved]
  - Rectal haemorrhage [Unknown]
  - Haematemesis [Recovered/Resolved]
  - Diverticulum intestinal [Unknown]
  - Gastrooesophageal reflux disease [Unknown]
  - Adhesion [Unknown]
  - Renal cyst [Unknown]
  - Dysphagia [Unknown]
  - Malabsorption [Unknown]
  - Oesophagitis [Unknown]

NARRATIVE: CASE EVENT DATE: 200712
